FAERS Safety Report 7480378-5 (Version None)
Quarter: 2011Q2

REPORT INFORMATION
  Report Type: 
  Country: None (occurrence: None)
  Receive Date: 20110512
  Receipt Date: 20110512
  Transmission Date: 20111010
  Serious: Yes (Hospitalization)
  Sender: FDA-Public Use
  Company Number: None

PATIENT
  Age: 57 Year
  Sex: Male
  Weight: 87 kg

DRUGS (2)
  1. LISINOPRIL [Suspect]
     Indication: HYPERTENSION
     Dosage: 40 MG EVERY DAY PO
     Route: 048
     Dates: start: 20050125, end: 20110422
  2. LISINOPRIL [Suspect]
     Indication: RENAL FAILURE CHRONIC
     Dosage: 40 MG EVERY DAY PO
     Route: 048
     Dates: start: 20050125, end: 20110422

REACTIONS (5)
  - ANGIOEDEMA [None]
  - THROAT IRRITATION [None]
  - LIP PAIN [None]
  - LIP SWELLING [None]
  - PHARYNGEAL OEDEMA [None]
